FAERS Safety Report 6397107-9 (Version None)
Quarter: 2009Q4

REPORT INFORMATION
  Report Type: 
  Country: None (occurrence: None)
  Receive Date: 20091012
  Receipt Date: 20091006
  Transmission Date: 20100525
  Serious: Yes (Hospitalization)
  Sender: FDA-Public Use
  Company Number: A0759219A

PATIENT
  Age: 40 Year
  Sex: Male
  Weight: 145.5 kg

DRUGS (2)
  1. AVANDIA [Suspect]
     Indication: TYPE 2 DIABETES MELLITUS
     Dosage: 8MG TWICE PER DAY
     Route: 065
     Dates: start: 20030111, end: 20070801
  2. AVANDAMET [Suspect]
     Indication: TYPE 2 DIABETES MELLITUS
     Dates: start: 20030113, end: 20060201

REACTIONS (10)
  - CARDIAC FAILURE CONGESTIVE [None]
  - CARDIOMYOPATHY [None]
  - CONGESTIVE CARDIOMYOPATHY [None]
  - FATIGUE [None]
  - INJURY [None]
  - PAIN [None]
  - PANIC ATTACK [None]
  - RENAL FAILURE [None]
  - SINUS TACHYCARDIA [None]
  - STRESS [None]
